FAERS Safety Report 6504059-7 (Version None)
Quarter: 2009Q4

REPORT INFORMATION
  Report Type: 
  Country: None (occurrence: None)
  Receive Date: 20091217
  Receipt Date: 20091215
  Transmission Date: 20100525
  Serious: Yes (Hospitalization)
  Sender: FDA-Public Use
  Company Number: US-EISAI INC.-E2020-05755-SPO-US

PATIENT
  Sex: Male

DRUGS (3)
  1. ARICEPT [Suspect]
     Route: 048
     Dates: start: 20090630, end: 20090921
  2. ARICEPT [Suspect]
     Route: 048
     Dates: start: 20090922, end: 20091101
  3. EFFEXOR [Concomitant]

REACTIONS (1)
  - PSYCHOTIC DISORDER [None]
